FAERS Safety Report 7794023-2 (Version None)
Quarter: 2011Q4

REPORT INFORMATION
  Report Type: 
  Country: None (occurrence: None)
  Receive Date: 20111004
  Receipt Date: 20110922
  Transmission Date: 20120403
  Serious: Yes (Other)
  Sender: FDA-Public Use
  Company Number: NL-AMGEN-NLDSP2011049681

PATIENT
  Age: 50 Year
  Sex: Female

DRUGS (2)
  1. PARACETAMOL WITH CODEINE PHOSPHATE [Concomitant]
     Dosage: UNK
  2. ENBREL [Suspect]
     Indication: RHEUMATOID ARTHRITIS
     Dosage: 50 MG, WEEKLY

REACTIONS (2)
  - PAIN [None]
  - RHEUMATOID ARTHRITIS [None]
